FAERS Safety Report 15854971 (Version 1)
Quarter: 2019Q1

REPORT INFORMATION
  Report Type: Spontaneous
  Country: ES (occurrence: ES)
  Receive Date: 20190122
  Receipt Date: 20190122
  Transmission Date: 20190417
  Serious: Yes (Other)
  Sender: FDA-Public Use
  Company Number: ES-TEVA-2019-ES-1002383

PATIENT
  Age: 50 Year
  Sex: Female

DRUGS (1)
  1. TAMOXIFENO RATIOPHARM 20 MG, COMPRIMIDOS EFG , [Suspect]
     Active Substance: TAMOXIFEN
     Indication: BREAST CANCER
     Route: 065
     Dates: start: 2012

REACTIONS (2)
  - Hypertriglyceridaemia [Unknown]
  - Hepatic steatosis [Unknown]

NARRATIVE: CASE EVENT DATE: 201811
